FAERS Safety Report 5696552-4 (Version None)
Quarter: 2008Q2

REPORT INFORMATION
  Report Type: 
  Country: None (occurrence: None)
  Receive Date: 20080404
  Receipt Date: 20080404
  Transmission Date: 20081010
  Serious: Yes (Life-Threatening, Hospitalization)
  Sender: FDA-Public Use
  Company Number: None

PATIENT
  Age: 44 Year
  Sex: Female
  Weight: 63.5036 kg

DRUGS (1)
  1. CHANTIX [Suspect]
     Indication: SMOKING CESSATION THERAPY
     Dosage: 1 DAILY PO
     Route: 048
     Dates: start: 20071101, end: 20080101

REACTIONS (4)
  - ABNORMAL BEHAVIOUR [None]
  - COMA [None]
  - LEGAL PROBLEM [None]
  - SUICIDE ATTEMPT [None]
